FAERS Safety Report 10248343 (Version 1)
Quarter: 2014Q2

REPORT INFORMATION
  Report Type: Spontaneous
  Country: US (occurrence: US)
  Receive Date: 20140620
  Receipt Date: 20140620
  Transmission Date: 20141212
  Serious: Yes (Other)
  Sender: FDA-Public Use
  Company Number: US-DRREDDYS-USA/USA/14/0039467

PATIENT
  Age: 5 Year
  Sex: Male

DRUGS (6)
  1. TACROLIMUS [Suspect]
     Indication: PRODUCT USED FOR UNKNOWN INDICATION
     Route: 065
  2. CANDESARTAN [Suspect]
     Indication: PROTEINURIA
     Route: 065
  3. CYCLOSPORIN A [Suspect]
     Indication: PROTEINURIA
     Route: 065
  4. PREDNISOLONE [Suspect]
     Indication: PROTEINURIA
     Route: 048
  5. PREDNISOLONE [Suspect]
     Route: 048
  6. ENALAPRIL [Concomitant]
     Indication: PROTEINURIA
     Route: 065

REACTIONS (1)
  - Anaemia [Unknown]
